FAERS Safety Report 6739848-7 (Version None)
Quarter: 2010Q2

REPORT INFORMATION
  Report Type: 
  Country: None (occurrence: None)
  Receive Date: 20100525
  Receipt Date: 20100510
  Transmission Date: 20101027
  Serious: Yes (Other)
  Sender: FDA-Public Use
  Company Number: US-BAXTER-2010BH003861

PATIENT
  Age: 58 Year
  Sex: Male
  Weight: 99 kg

DRUGS (6)
  1. HEPARIN SODIUM INJECTION [Suspect]
     Indication: DIALYSIS
     Route: 041
     Dates: start: 20070109, end: 20070101
  2. HEPARIN SODIUM INJECTION [Suspect]
     Indication: PULMONARY EMBOLISM
     Route: 041
     Dates: start: 20070109, end: 20070101
  3. HEPARIN SODIUM INJECTION [Suspect]
     Route: 058
     Dates: start: 20070209, end: 20070209
  4. HEPARIN SODIUM INJECTION [Suspect]
     Route: 058
     Dates: start: 20070209, end: 20070209
  5. HEPARIN SODIUM INJECTION [Suspect]
     Route: 041
     Dates: start: 20070209, end: 20070220
  6. HEPARIN SODIUM INJECTION [Suspect]
     Route: 041
     Dates: start: 20070209, end: 20070220

REACTIONS (5)
  - DIZZINESS [None]
  - HYPERHIDROSIS [None]
  - HYPOTENSION [None]
  - SYNCOPE [None]
  - VISION BLURRED [None]
